FAERS Safety Report 9562174 (Version 1)
Quarter: 2013Q3

REPORT INFORMATION
  Report Type: Spontaneous
  Country: US (occurrence: US)
  Receive Date: 20130927
  Receipt Date: 20130927
  Transmission Date: 20140515
  Serious: No
  Sender: FDA-Public Use
  Company Number: US-PFIZER INC-2013277967

PATIENT
  Age: 66 Year
  Sex: Female
  Weight: 65.31 kg

DRUGS (4)
  1. LYRICA [Suspect]
     Indication: NEURALGIA
     Dosage: 150 MG, 2X/DAY
     Dates: start: 2006
  2. LYRICA [Suspect]
     Indication: FIBROMYALGIA
  3. HYDROCODONE [Concomitant]
     Indication: BACK PAIN
     Dosage: UNK
  4. PLAQUENIL [Concomitant]
     Indication: ARTHRITIS
     Dosage: UNK

REACTIONS (3)
  - Somnolence [Recovered/Resolved]
  - Drug intolerance [Unknown]
  - Feeling drunk [Recovered/Resolved]
